FAERS Safety Report 4536495-2 (Version None)
Quarter: 2004Q4

REPORT INFORMATION
  Report Type: 
  Country: None (occurrence: None)
  Receive Date: 20041223
  Receipt Date: 20041214
  Transmission Date: 20050328
  Serious: Yes (Death)
  Sender: FDA-Public Use
  Company Number: US-JNJFOC-20040902890

PATIENT
  Sex: Female

DRUGS (2)
  1. RISPERDAL [Suspect]
     Route: 049
  2. EXELON [Concomitant]

REACTIONS (1)
  - CARDIAC FAILURE [None]
